FAERS Safety Report 19533723 (Version 1)
Quarter: 2021Q3

REPORT INFORMATION
  Report Type: Spontaneous
  Country: US (occurrence: US)
  Receive Date: 20210714
  Receipt Date: 20210714
  Transmission Date: 20211014
  Serious: No
  Sender: FDA-Public Use
  Company Number: US-GLAXOSMITHKLINE-USCH2021045226

PATIENT
  Sex: Female

DRUGS (1)
  1. ALLI [Suspect]
     Active Substance: ORLISTAT
     Indication: WEIGHT LOSS DIET
     Dates: start: 20210514, end: 20210601

REACTIONS (3)
  - Drug ineffective [Unknown]
  - Diarrhoea [Unknown]
  - Product complaint [Unknown]

NARRATIVE: CASE EVENT DATE: 20210516
